FAERS Safety Report 21479304 (Version 1)
Quarter: 2022Q4

REPORT INFORMATION
  Report Type: Spontaneous
  Country: CA (occurrence: CA)
  Receive Date: 20221019
  Receipt Date: 20221019
  Transmission Date: 20230112
  Serious: Yes (Life-Threatening)
  Sender: FDA-Public Use
  Company Number: CA-TEVA-2022-CA-2817042

PATIENT
  Age: 41 Year
  Sex: Male
  Weight: 136 kg

DRUGS (2)
  1. FENTANYL [Suspect]
     Active Substance: FENTANYL
     Indication: Endoscopy upper gastrointestinal tract
     Route: 065
  2. MIDAZOLAM [Suspect]
     Active Substance: MIDAZOLAM
     Indication: Endoscopy upper gastrointestinal tract
     Route: 065

REACTIONS (7)
  - Apnoeic attack [Recovered/Resolved]
  - Oxygen saturation decreased [Recovered/Resolved]
  - Oxygen therapy [Recovered/Resolved]
  - Reversal of sedation [Recovered/Resolved]
  - Sedation complication [Recovered/Resolved]
  - Snoring [Recovered/Resolved]
  - Unresponsive to stimuli [Recovered/Resolved]
